FAERS Safety Report 9057552 (Version 1)
Quarter: 2013Q1

REPORT INFORMATION
  Report Type: Spontaneous
  Country: US (occurrence: None)
  Receive Date: 20130204
  Receipt Date: 20130204
  Transmission Date: 20140127
  Serious: Yes (Other)
  Sender: FDA-Public Use
  Company Number: None

PATIENT
  Age: 66 Year
  Sex: Female
  Weight: 74.84 kg

DRUGS (1)
  1. CYTOMEL [Suspect]
     Indication: HYPOTHYROIDISM
     Route: 048
     Dates: start: 20130120, end: 20130129

REACTIONS (11)
  - Fatigue [None]
  - Depression [None]
  - Insomnia [None]
  - Quality of life decreased [None]
  - Impaired work ability [None]
  - Nervousness [None]
  - Tension [None]
  - Malaise [None]
  - Pain [None]
  - Drug effect decreased [None]
  - Product quality issue [None]
